FAERS Safety Report 5479994-1 (Version None)
Quarter: 2007Q4

REPORT INFORMATION
  Report Type: 
  Country: None (occurrence: None)
  Receive Date: 20071008
  Receipt Date: 20070928
  Transmission Date: 20080405
  Serious: Yes (Other)
  Sender: FDA-Public Use
  Company Number: CA-ABBOTT-07P-028-0419039-00

PATIENT
  Sex: Female

DRUGS (3)
  1. MERIDIA [Suspect]
     Indication: DRUG USE FOR UNKNOWN INDICATION
     Route: 048
  2. MERIDIA [Suspect]
     Route: 048
  3. PETHIDINE [Suspect]
     Indication: DRUG USE FOR UNKNOWN INDICATION
     Dosage: NOT REPORTED

REACTIONS (4)
  - BRAIN OEDEMA [None]
  - HEADACHE [None]
  - HYPERTENSION [None]
  - SURGERY [None]
